FAERS Safety Report 9158237 (Version 1)
Quarter: 2013Q1

REPORT INFORMATION
  Report Type: Spontaneous
  Country: DE (occurrence: DE)
  Receive Date: 20130312
  Receipt Date: 20130312
  Transmission Date: 20140127
  Serious: Yes (Other)
  Sender: FDA-Public Use
  Company Number: DE-PFIZER INC-2013079989

PATIENT
  Age: 61 Year
  Sex: Female
  Weight: 51 kg

DRUGS (5)
  1. LYRICA [Suspect]
     Indication: PAIN
     Dosage: 75 MG, AS NEEDED
     Route: 048
  2. CYMBALTA [Suspect]
     Indication: PAIN
     Dosage: UNK
     Route: 048
  3. RITALIN [Suspect]
     Indication: ATTENTION DEFICIT/HYPERACTIVITY DISORDER
     Route: 048
  4. L-THYROXIN [Concomitant]
     Indication: HYPOTHYROIDISM
     Dosage: 75 UG, UNK
  5. ATENOLOL [Concomitant]
     Indication: HYPERTENSION
     Dosage: 50 MG, UNK

REACTIONS (3)
  - Parkinsonism [Recovered/Resolved with Sequelae]
  - Paraesthesia [Unknown]
  - Initial insomnia [Unknown]
